FAERS Safety Report 5674077-X (Version None)
Quarter: 2008Q2

REPORT INFORMATION
  Report Type: 
  Country: None (occurrence: None)
  Receive Date: 20080227
  Receipt Date: 20071002
  Transmission Date: 20081010
  Serious: Yes (Hospitalization)
  Sender: FDA-Public Use
  Company Number: ALA_00021_2007

PATIENT
  Age: 66 Year
  Sex: Female

DRUGS (6)
  1. ROWASA [Suspect]
     Indication: GASTROINTESTINAL HAEMORRHAGE
     Dosage: (4 G BID RECTAL)
     Route: 054
     Dates: start: 20070922, end: 20070929
  2. ROWASA [Suspect]
     Indication: GASTROINTESTINAL HAEMORRHAGE
     Dosage: (800 MG TID ORAL)
     Route: 048
     Dates: start: 20070925
  3. NOVOLOG [Concomitant]
  4. TOPROL-XL [Concomitant]
  5. NITROGLYCERIN [Concomitant]
  6. LASIX [Concomitant]

REACTIONS (3)
  - DIARRHOEA [None]
  - GASTROINTESTINAL HAEMORRHAGE [None]
  - RECTAL ULCER [None]
